FAERS Safety Report 16809252 (Version 1)
Quarter: 2019Q3

REPORT INFORMATION
  Report Type: Spontaneous
  Country: FR (occurrence: FR)
  Receive Date: 20190916
  Receipt Date: 20190916
  Transmission Date: 20191005
  Serious: Yes (Hospitalization)
  Sender: FDA-Public Use
  Company Number: PHHY2019FR213198

PATIENT
  Age: 30 Year
  Sex: Female

DRUGS (1)
  1. METOPROLOL. [Suspect]
     Active Substance: METOPROLOL
     Indication: SUICIDE ATTEMPT
     Dosage: 4 G, UNK
     Route: 048

REACTIONS (6)
  - Hypotension [Recovered/Resolved]
  - Suicide attempt [Unknown]
  - Intentional product misuse [Recovered/Resolved]
  - Sinus bradycardia [Recovered/Resolved]
  - Ejection fraction decreased [Recovered/Resolved]
  - Toxicity to various agents [Recovered/Resolved]
